FAERS Safety Report 7398734-2 (Version None)
Quarter: 2011Q2

REPORT INFORMATION
  Report Type: 
  Country: None (occurrence: None)
  Receive Date: 20110401
  Receipt Date: 20110401
  Transmission Date: 20111010
  Serious: Yes (Life-Threatening, Other)
  Sender: FDA-Public Use
  Company Number: None

PATIENT
  Age: 34 Year
  Sex: Female
  Weight: 70.3075 kg

DRUGS (1)
  1. MIRENA [Suspect]
     Indication: CONTRACEPTION
     Dates: start: 20110225, end: 20110401

REACTIONS (7)
  - MUSCULOSKELETAL CHEST PAIN [None]
  - FATIGUE [None]
  - PALPITATIONS [None]
  - MOOD SWINGS [None]
  - DEPRESSION [None]
  - ANXIETY [None]
  - NERVOUSNESS [None]
